FAERS Safety Report 7288044-6 (Version None)
Quarter: 2011Q1

REPORT INFORMATION
  Report Type: 
  Country: None (occurrence: None)
  Receive Date: 20110211
  Receipt Date: 20110201
  Transmission Date: 20110831
  Serious: Yes (Hospitalization)
  Sender: FDA-Public Use
  Company Number: PHFR2011GB00550

PATIENT
  Sex: Female

DRUGS (3)
  1. CLOZARIL [Suspect]
     Indication: SCHIZOPHRENIA
     Dosage: 400 MG, UNK
     Route: 048
     Dates: start: 20060912, end: 20110107
  2. AMISULPRIDE [Concomitant]
     Indication: SCHIZOPHRENIA
     Dosage: 400 MG, UNK
     Route: 048
  3. HYOSCINE HBR HYT [Concomitant]
     Dosage: 300 MG, BID
     Route: 060

REACTIONS (6)
  - H1N1 INFLUENZA [None]
  - LIVER FUNCTION TEST ABNORMAL [None]
  - MENTAL DISORDER [None]
  - RESPIRATORY DISORDER [None]
  - ALANINE AMINOTRANSFERASE INCREASED [None]
  - HEPATITIS [None]
